FAERS Safety Report 17402811 (Version 1)
Quarter: 2020Q1

REPORT INFORMATION
  Report Type: Spontaneous
  Country: GB (occurrence: US)
  Receive Date: 20200211
  Receipt Date: 20200211
  Transmission Date: 20200409
  Serious: No
  Sender: FDA-Public Use
  Company Number: GB-PFIZER INC-2020054534

PATIENT
  Age: 35 Year
  Sex: Female

DRUGS (4)
  1. CEFTRIAXONE SODIUM. [Suspect]
     Active Substance: CEFTRIAXONE SODIUM
     Dosage: UNK
  2. CIPROFLOXACIN. [Suspect]
     Active Substance: CIPROFLOXACIN
     Dosage: UNK
  3. MEROPENEM. [Suspect]
     Active Substance: MEROPENEM
     Dosage: UNK
  4. VANCOMYCIN HCL [Suspect]
     Active Substance: VANCOMYCIN HYDROCHLORIDE
     Dosage: UNK

REACTIONS (3)
  - Condition aggravated [Unknown]
  - Pyrexia [Unknown]
  - Secretion discharge [Unknown]
